FAERS Safety Report 6882223-5 (Version None)
Quarter: 2010Q2

REPORT INFORMATION
  Report Type: 
  Country: None (occurrence: None)
  Receive Date: 20100618
  Receipt Date: 20100618
  Transmission Date: 20101027
  Serious: No
  Sender: FDA-Public Use
  Company Number: None

PATIENT

DRUGS (2)
  1. FRESH BURST LISTERINE JOHNSON AND JOHNSON/MCNEIL [Suspect]
     Indication: BREATH ODOUR
     Dosage: RINSE OR GARGLE DAILY OROPHARINGE
     Route: 049
  2. FRESH BURST LISTERINE JOHNSON AND JOHNSON/MCNEIL [Suspect]
     Indication: GINGIVITIS
     Dosage: RINSE OR GARGLE DAILY OROPHARINGE
     Route: 049

REACTIONS (1)
  - PRODUCT CONTAMINATION PHYSICAL [None]
